FAERS Safety Report 18452786 (Version 1)
Quarter: 2020Q4

REPORT INFORMATION
  Report Type: Spontaneous
  Country: FR (occurrence: FR)
  Receive Date: 20201102
  Receipt Date: 20201102
  Transmission Date: 20210114
  Serious: Yes (Other)
  Sender: FDA-Public Use
  Company Number: FR-GLAXOSMITHKLINE-FR2020216030

PATIENT
  Age: 11 Year
  Sex: Male

DRUGS (1)
  1. VENTOLINE [Suspect]
     Active Substance: ALBUTEROL
     Indication: INTENTIONAL PRODUCT MISUSE
     Dosage: UNSPECIFIED
     Route: 003

REACTIONS (2)
  - Skin depigmentation [Unknown]
  - Rash [Recovering/Resolving]
